FAERS Safety Report 19045987 (Version 1)
Quarter: 2021Q1

REPORT INFORMATION
  Report Type: Spontaneous
  Country: NL (occurrence: NL)
  Receive Date: 20210322
  Receipt Date: 20210322
  Transmission Date: 20210420
  Serious: Yes (Hospitalization, Other)
  Sender: FDA-Public Use
  Company Number: NL-BIOGEN-2021BI00990122

PATIENT
  Age: 59 Year
  Sex: Female

DRUGS (1)
  1. TYSABRI [Suspect]
     Active Substance: NATALIZUMAB
     Indication: RELAPSING-REMITTING MULTIPLE SCLEROSIS
     Route: 065
     Dates: start: 2006

REACTIONS (4)
  - Varicella zoster virus infection [Unknown]
  - Cerebral infarction [Unknown]
  - Herpes zoster infection neurological [Unknown]
  - Herpes zoster necrotising retinopathy [Unknown]

NARRATIVE: CASE EVENT DATE: 201912
